FAERS Safety Report 4313691-0 (Version None)
Quarter: 2004Q1

REPORT INFORMATION
  Report Type: 
  Country: None (occurrence: None)
  Receive Date: 20040305
  Receipt Date: 20040226
  Transmission Date: 20041129
  Serious: Yes (Hospitalization, Other)
  Sender: FDA-Public Use
  Company Number: USA-2003-0006913

PATIENT
  Age: 60 Year
  Sex: Male
  Weight: 71.7 kg

DRUGS (57)
  1. OXYCONTIN [Suspect]
     Indication: PAIN
     Dosage: SEE IMAGE
     Dates: start: 20000308, end: 20000816
  2. OXYCONTIN [Suspect]
     Indication: PAIN
     Dosage: SEE IMAGE
     Dates: start: 20000816, end: 20000905
  3. OXYCONTIN [Suspect]
     Indication: PAIN
     Dosage: SEE IMAGE
     Dates: start: 20001004, end: 20001214
  4. OXYCONTIN [Suspect]
     Indication: PAIN
     Dosage: SEE IMAGE
     Dates: end: 20010213
  5. OXYCONTIN [Suspect]
     Indication: PAIN
     Dosage: SEE IMAGE
     Dates: start: 20010214, end: 20010307
  6. OXYCONTIN [Suspect]
     Indication: PAIN
     Dosage: SEE IMAGE
     Dates: start: 20010308, end: 20010310
  7. OXYCONTIN [Suspect]
     Indication: PAIN
     Dosage: SEE IMAGE
     Dates: start: 20010311, end: 20010313
  8. OXYCONTIN [Suspect]
     Indication: PAIN
     Dosage: SEE IMAGE
     Dates: start: 20010308, end: 20010314
  9. OXYCONTIN [Suspect]
     Indication: PAIN
     Dosage: SEE IMAGE
     Dates: start: 20000127
  10. OXYCONTIN [Suspect]
     Indication: PAIN
     Dosage: SEE IMAGE
     Dates: start: 20000905
  11. OXYCONTIN [Suspect]
     Indication: PAIN
     Dosage: SEE IMAGE
     Dates: start: 20001214
  12. VICODIN [Suspect]
     Indication: PAIN
  13. PANTOPRAZOLE [Concomitant]
  14. M.V.I. (ERGOCALCIFEROL, ASCORBIC ACID, PYRIDOXINE HYDROCHLORIDE, TOCOP [Concomitant]
  15. CIPROFLOXACIN [Concomitant]
  16. PROMETHAZINE HYDROCHLORIDE TAB [Concomitant]
  17. LANSOPRAZOLE [Concomitant]
  18. POTASSIUM CHLORIDE [Concomitant]
  19. ZOLPIDEM TARTRATE [Concomitant]
  20. THIAMINE ^SAD^ (THIAMINE) [Concomitant]
  21. LEVETIRACETAM [Concomitant]
  22. HUMALOG (INSULIN LISOPRO) [Concomitant]
  23. MAGNESIUM CHLORIDE ANHYDROUS (MAGNESIUM CHLORIDE ANHYDROUS) [Concomitant]
  24. MEPERIDINE HCL [Concomitant]
  25. DROPERIDOL [Concomitant]
  26. MIDAZOLAM HCL [Concomitant]
  27. BACITRACINE-NEOMYCINE (NEOMYCIN SULFATE) [Concomitant]
  28. BENZOCAINE (BENZOCAINE) [Concomitant]
  29. TETRACAINE (TETRACAINE) [Concomitant]
  30. ROXICODONE [Concomitant]
  31. ATENOLOL [Concomitant]
  32. SULFAMETHOZAOLE W/TRIMETHOPRIM (TRIMETHOPRIM, SULFAMETHOXAZOLE) [Concomitant]
  33. CARISOPRODOL [Concomitant]
  34. OXYIR CAPSULES  (OXYCODONE HYDROCHLORIDE) [Concomitant]
  35. ULTRAM [Concomitant]
  36. FOLATE SODIUM (FOLATE SODIUM) [Concomitant]
  37. FERROUS GLUCONATE (FERROUS GLUCONATE) [Concomitant]
  38. KEEFLEX (CEFALEXIN MONOHYDRATE) [Concomitant]
  39. PREDNISONE [Concomitant]
  40. MEICELIN (CEFMINOX) [Concomitant]
  41. CALCIUM WITH VITAMIN D (ERGOCALCIFEROL, CALCIUM PHOSPHATE, CALCIUM SOD [Concomitant]
  42. TYLENOL (CAPLET) [Concomitant]
  43. PEPCID [Concomitant]
  44. ATIVAN [Concomitant]
  45. TESTOSTERONE [Concomitant]
  46. VASOTEC [Concomitant]
  47. NEURONTIN [Concomitant]
  48. REMERON [Concomitant]
  49. CLARITIN [Concomitant]
  50. VIOXX [Concomitant]
  51. LORCET-HD [Concomitant]
  52. LORTAB [Concomitant]
  53. CALAN [Concomitant]
  54. ANCEF [Concomitant]
  55. NEBCIN [Concomitant]
  56. BACTRIM [Concomitant]
  57. RIFAMPICIN [Concomitant]

REACTIONS (35)
  - ACCIDENTAL OVERDOSE [None]
  - ANXIETY [None]
  - ASTHENIA [None]
  - BLOOD ALBUMIN DECREASED [None]
  - BLOOD POTASSIUM DECREASED [None]
  - BODY TEMPERATURE INCREASED [None]
  - BURSITIS INFECTIVE STAPHYLOCOCCAL [None]
  - CELLULITIS [None]
  - CONVULSION [None]
  - DECREASED APPETITE [None]
  - DELIRIUM [None]
  - DIARRHOEA [None]
  - DRUG ABUSER [None]
  - DRUG DEPENDENCE [None]
  - DRUG WITHDRAWAL SYNDROME [None]
  - EMOTIONAL DISTRESS [None]
  - ENCEPHALOPATHY [None]
  - FATIGUE [None]
  - HAEMOGLOBIN DECREASED [None]
  - HYPERGLYCAEMIA [None]
  - INSOMNIA [None]
  - LIVER FUNCTION TEST ABNORMAL [None]
  - MULTIPLE DRUG OVERDOSE [None]
  - NAUSEA [None]
  - OFF LABEL USE [None]
  - OTITIS MEDIA [None]
  - PAIN [None]
  - RENAL FAILURE ACUTE [None]
  - SEPSIS [None]
  - SINUSITIS [None]
  - TACHYCARDIA [None]
  - UPPER GASTROINTESTINAL HAEMORRHAGE [None]
  - VOMITING [None]
  - WEIGHT DECREASED [None]
  - WHITE BLOOD CELL COUNT INCREASED [None]
